FAERS Safety Report 4275947-X (Version None)
Quarter: 2004Q1

REPORT INFORMATION
  Report Type: 
  Country: None (occurrence: None)
  Receive Date: 20040121
  Receipt Date: 20030404
  Transmission Date: 20041129
  Serious: No
  Sender: FDA-Public Use
  Company Number: US-GLAXOSMITHKLINE-A0403546A

PATIENT
  Sex: Female

DRUGS (2)
  1. VALTREX [Suspect]
     Dosage: 2G TWICE PER DAY
     Route: 048
  2. MULTIPLE MEDICATIONS [Concomitant]

REACTIONS (3)
  - DRUG INEFFECTIVE [None]
  - INTENTIONAL OVERDOSE [None]
  - URTICARIA [None]
